FAERS Safety Report 5121001-4 (Version None)
Quarter: 2006Q4

REPORT INFORMATION
  Report Type: 
  Country: None (occurrence: None)
  Receive Date: 20061005
  Receipt Date: 20060922
  Transmission Date: 20070319
  Serious: Yes (Other)
  Sender: FDA-Public Use
  Company Number: PHEH2006US12181

PATIENT
  Age: 62 Year
  Sex: Male
  Weight: 68.934 kg

DRUGS (4)
  1. ZOMETA [Suspect]
     Indication: MULTIPLE MYELOMA
     Dosage: 4 MG EVERY 28 DAYS
     Dates: start: 20020501, end: 20060501
  2. MELPHALAN [Concomitant]
  3. THALIDOMIDE [Concomitant]
  4. VELCADE [Concomitant]

REACTIONS (4)
  - BONE DISORDER [None]
  - ORAL SOFT TISSUE DISORDER [None]
  - OSTEONECROSIS [None]
  - TOOTH EXTRACTION [None]
